FAERS Safety Report 8553428-2 (Version None)
Quarter: 2012Q2

REPORT INFORMATION
  Report Type: 
  Country: None (occurrence: None)
  Receive Date: 20120417
  Receipt Date: 20110516
  Transmission Date: 20120825
  Serious: Yes (Other)
  Sender: FDA-Public Use
  Company Number: 1-296

PATIENT
  Sex: Female

DRUGS (1)
  1. ALEVE [Suspect]
     Dosage: 1DF / QD / ORAL
     Route: 048

REACTIONS (2)
  - FAECES DISCOLOURED [None]
  - DIARRHOEA [None]
